FAERS Safety Report 7406137-7 (Version None)
Quarter: 2011Q2

REPORT INFORMATION
  Report Type: 
  Country: None (occurrence: None)
  Receive Date: 20110411
  Receipt Date: 20110331
  Transmission Date: 20111010
  Serious: No
  Sender: FDA-Public Use
  Company Number: US-AMGEN-USASP2011017251

PATIENT
  Sex: Male

DRUGS (6)
  1. FLUOROURACIL [Concomitant]
  2. OXALIPLATIN [Concomitant]
  3. AVASTIN [Concomitant]
  4. VECTIBIX [Suspect]
     Indication: COLORECTAL CANCER METASTATIC
     Dosage: UNK UNK, Q2WK
     Dates: start: 20100901
  5. ALOXI [Concomitant]
  6. CAMPTOSAR [Concomitant]

REACTIONS (4)
  - RHINORRHOEA [None]
  - OTORRHOEA [None]
  - DRY SKIN [None]
  - RASH PRURITIC [None]
